FAERS Safety Report 5184282-7 (Version None)
Quarter: 2006Q4

REPORT INFORMATION
  Report Type: 
  Country: None (occurrence: None)
  Receive Date: 20061220
  Receipt Date: 20060327
  Transmission Date: 20070319
  Serious: No
  Sender: FDA-Public Use
  Company Number: US-GLAXOSMITHKLINE-A0599093A

PATIENT
  Age: 45 Year
  Sex: Female

DRUGS (2)
  1. NICODERM CQ [Suspect]
     Dates: start: 20060318
  2. NICODERM CQ [Suspect]
     Dates: start: 20060318

REACTIONS (7)
  - ABNORMAL DREAMS [None]
  - HYPERHIDROSIS [None]
  - HYPERSENSITIVITY [None]
  - INSOMNIA [None]
  - NICOTINE DEPENDENCE [None]
  - PRURITUS [None]
  - RASH [None]
